FAERS Safety Report 19588707 (Version 4)
Quarter: 2022Q1

REPORT INFORMATION
  Report Type: Spontaneous
  Country: DE (occurrence: DE)
  Receive Date: 20210721
  Receipt Date: 20220128
  Transmission Date: 20220423
  Serious: Yes (Hospitalization, Other)
  Sender: FDA-Public Use
  Company Number: DE-AUROBINDO-AUR-APL-2021-030171

PATIENT
  Age: 71 Year
  Sex: Female
  Weight: 51.7 kg

DRUGS (2)
  1. RISEDRONATE SODIUM [Suspect]
     Active Substance: RISEDRONATE SODIUM
     Indication: Osteoporosis
     Dosage: 1 DOSAGE FORM,A WEEK ,EVERY MONDAY MORNING
     Route: 065
     Dates: start: 20190911
  2. NATTOKINASE [Concomitant]
     Active Substance: NATTOKINASE
     Indication: Anticoagulant therapy
     Dosage: UNK
     Route: 065
     Dates: start: 2011

REACTIONS (12)
  - Surgery [Unknown]
  - Plastic surgery to the face [Not Recovered/Not Resolved]
  - Dental operation [Unknown]
  - Ulcer [Unknown]
  - Feeling abnormal [Recovered/Resolved]
  - Alopecia [Recovering/Resolving]
  - Headache [Recovered/Resolved]
  - Arthralgia [Recovering/Resolving]
  - Dysphagia [Recovering/Resolving]
  - Osteitis [Recovering/Resolving]
  - Limb discomfort [Not Recovered/Not Resolved]
  - Pain in jaw [Recovered/Resolved]

NARRATIVE: CASE EVENT DATE: 20200101
